FAERS Safety Report 8912333 (Version 2)
Quarter: 2013Q2

REPORT INFORMATION
  Report Type: Spontaneous
  Country: CN (occurrence: CN)
  Receive Date: 20121115
  Receipt Date: 20130624
  Transmission Date: 20140414
  Serious: Yes (Other)
  Sender: FDA-Public Use
  Company Number: CN-ELI_LILLY_AND_COMPANY-CN201211004011

PATIENT
  Sex: 0

DRUGS (3)
  1. GEMCITABINE HYDROCHLORIDE [Suspect]
     Indication: NASOPHARYNGEAL CANCER
     Dosage: 800 MG/M2, OTHER
  2. CISPLATIN [Concomitant]
     Indication: NASOPHARYNGEAL CANCER
     Dosage: 20 MG/M2, UNK
  3. THERAPEUTIC RADIOPHARMACEUTICALS [Concomitant]
     Indication: NASOPHARYNGEAL CANCER

REACTIONS (1)
  - Hepatitis [Recovered/Resolved]
